FAERS Safety Report 7716183-1 (Version None)
Quarter: 2011Q3

REPORT INFORMATION
  Report Type: 
  Country: None (occurrence: None)
  Receive Date: 20110823
  Receipt Date: 20110808
  Transmission Date: 20111222
  Serious: Yes (Other)
  Sender: FDA-Public Use
  Company Number: TR-ACCORD-010343

PATIENT
  Age: 43 Year
  Sex: Female

DRUGS (5)
  1. CYCLOPHOSPHAMIDE [Suspect]
     Indication: BREAST CANCER
  2. TAMOXIFEN CITRATE [Concomitant]
  3. PACLITAXEL [Suspect]
     Indication: BREAST CANCER
  4. EPIRUBICIN HYDROCHLORIDE [Suspect]
     Indication: BREAST CANCER
  5. FLUOROURACIL [Suspect]
     Indication: BREAST CANCER

REACTIONS (2)
  - ACUTE PROMYELOCYTIC LEUKAEMIA [None]
  - TREATMENT RELATED SECONDARY MALIGNANCY [None]
